FAERS Safety Report 21320721 (Version 2)
Quarter: 2022Q4

REPORT INFORMATION
  Report Type: Spontaneous
  Country: US (occurrence: US)
  Receive Date: 20220912
  Receipt Date: 20221020
  Transmission Date: 20230113
  Serious: Yes (Hospitalization, Other)
  Sender: FDA-Public Use
  Company Number: US-CHIESI-2022CHF04569

PATIENT
  Age: 76 Year
  Sex: Female
  Weight: 48 kg

DRUGS (11)
  1. FERRIPROX [Suspect]
     Active Substance: DEFERIPRONE
     Indication: Haemochromatosis
     Dosage: 1000 MILLIGRAM, BID
     Route: 048
     Dates: start: 20210422
  2. FERRIPROX [Suspect]
     Active Substance: DEFERIPRONE
     Indication: Transfusion
  3. FERRIPROX [Suspect]
     Active Substance: DEFERIPRONE
     Indication: Refractory anaemia with an excess of blasts
  4. FERRIPROX [Suspect]
     Active Substance: DEFERIPRONE
     Indication: Sideroblastic anaemia
  5. FERRIPROX [Suspect]
     Active Substance: DEFERIPRONE
     Indication: Iron overload
  6. FERRIPROX [Suspect]
     Active Substance: DEFERIPRONE
     Indication: Myelodysplastic syndrome
  7. FERRIPROX [Suspect]
     Active Substance: DEFERIPRONE
     Indication: Off label use
  8. REQUIP [Concomitant]
     Active Substance: ROPINIROLE HYDROCHLORIDE
     Indication: Product used for unknown indication
     Dosage: 0.25 MILLIGRAM, TID
     Dates: start: 20220530
  9. OMEPRAZOLE [Concomitant]
     Active Substance: OMEPRAZOLE
     Indication: Product used for unknown indication
     Dosage: UNK
  10. MEGACE [Concomitant]
     Active Substance: MEGESTROL ACETATE
     Indication: Product used for unknown indication
     Dosage: 40 MILLIGRAM, BID
     Route: 048
     Dates: start: 20220630, end: 20220928
  11. CITALOPRAM [Concomitant]
     Active Substance: CITALOPRAM HYDROBROMIDE
     Indication: Product used for unknown indication
     Dosage: UNK

REACTIONS (8)
  - Seizure [Recovered/Resolved]
  - Haemoglobin decreased [Recovered/Resolved]
  - Hypokalaemia [Recovered/Resolved]
  - Mental status changes [Recovered/Resolved]
  - Syncope [Recovered/Resolved]
  - Tremor [Recovered/Resolved]
  - Off label use [Not Recovered/Not Resolved]
  - Off label use [Not Recovered/Not Resolved]

NARRATIVE: CASE EVENT DATE: 20210422
